FAERS Safety Report 5846014-6 (Version None)
Quarter: 2008Q3

REPORT INFORMATION
  Report Type: 
  Country: None (occurrence: None)
  Receive Date: 20080814
  Receipt Date: 20080805
  Transmission Date: 20090109
  Serious: Yes (Other)
  Sender: FDA-Public Use
  Company Number: US-PFIZER INC-2003020372

PATIENT
  Sex: Female
  Weight: 81.6 kg

DRUGS (5)
  1. ACCUPRIL [Suspect]
     Indication: BLOOD PRESSURE
     Dosage: DAILY DOSE:20MG-FREQ:DAILY
     Route: 048
  2. PLAVIX [Concomitant]
     Route: 048
  3. ASPIRIN [Concomitant]
     Route: 048
  4. PRAVACHOL [Concomitant]
     Route: 048
  5. MESCOLOR [Concomitant]
     Route: 048

REACTIONS (7)
  - BLINDNESS [None]
  - BLOOD PRESSURE INCREASED [None]
  - CEREBROVASCULAR ACCIDENT [None]
  - DRUG DOSE OMISSION [None]
  - HEADACHE [None]
  - PERIPHERAL VASCULAR DISORDER [None]
  - PHARMACEUTICAL PRODUCT COMPLAINT [None]
